FAERS Safety Report 25754511 (Version 1)
Quarter: 2025Q3

REPORT INFORMATION
  Report Type: Spontaneous
  Country: GB (occurrence: GB)
  Receive Date: 20250903
  Receipt Date: 20250903
  Transmission Date: 20251021
  Serious: Yes (Other)
  Sender: AUROBINDO
  Company Number: GB-MHRA-MED-202508221055003190-CDTRS

PATIENT
  Age: 59 Year
  Sex: Male
  Weight: 70 kg

DRUGS (2)
  1. CIPROFLOXACIN [Suspect]
     Active Substance: CIPROFLOXACIN
     Indication: Pyelonephritis
     Route: 065
     Dates: start: 20250821, end: 20250822
  2. Oestriol [Concomitant]
     Indication: Vulvovaginal dryness
     Route: 065
     Dates: start: 20240415, end: 20250822

REACTIONS (4)
  - Impaired driving ability [Recovering/Resolving]
  - Anxiety [Recovering/Resolving]
  - Limb discomfort [Recovering/Resolving]
  - Disturbance in attention [Recovering/Resolving]

NARRATIVE: CASE EVENT DATE: 20250821
